FAERS Safety Report 5790243-7 (Version None)
Quarter: 2008Q2

REPORT INFORMATION
  Report Type: 
  Country: None (occurrence: None)
  Receive Date: 20080626
  Receipt Date: 20080303
  Transmission Date: 20081010
  Serious: No
  Sender: FDA-Public Use
  Company Number: A0706795A

PATIENT
  Age: 36 Year
  Sex: Male

DRUGS (1)
  1. ALLI [Suspect]
     Dates: start: 20080106

REACTIONS (4)
  - PHARMACEUTICAL PRODUCT COMPLAINT [None]
  - POLLAKIURIA [None]
  - POLYDIPSIA [None]
  - RECTAL DISCHARGE [None]
